FAERS Safety Report 9372226 (Version 1)
Quarter: 2013Q2

REPORT INFORMATION
  Report Type: Report from Study
  Country: US (occurrence: US)
  Receive Date: 20130627
  Receipt Date: 20130627
  Transmission Date: 20140414
  Serious: Yes (Other)
  Sender: FDA-Public Use
  Company Number: US-MYLANLABS-2012S1017642

PATIENT
  Age: 35 Year
  Sex: Female

DRUGS (5)
  1. CLOZAPINE TABLETS [Suspect]
     Dates: start: 200702, end: 2012
  2. CLOZAPINE TABLETS [Suspect]
     Dates: start: 20120831
  3. DEPAKOTE [Concomitant]
  4. ARTANE [Concomitant]
  5. TOPIRAMATE [Concomitant]

REACTIONS (1)
  - Granulocytopenia [Not Recovered/Not Resolved]
